FAERS Safety Report 21039813 (Version 1)
Quarter: 2022Q3

REPORT INFORMATION
  Report Type: Spontaneous
  Country: CA (occurrence: CA)
  Receive Date: 20220704
  Receipt Date: 20220704
  Transmission Date: 20221027
  Serious: Yes (Hospitalization)
  Sender: FDA-Public Use
  Company Number: CA-PFIZER INC-202200912979

PATIENT
  Age: 25 Day
  Sex: Male
  Weight: 3 kg

DRUGS (12)
  1. TPN ELECTROLYTES [Suspect]
     Active Substance: CALCIUM CHLORIDE\MAGNESIUM CHLORIDE\POTASSIUM CHLORIDE\SODIUM ACETATE ANHYDROUS\SODIUM CHLORIDE
     Indication: Parenteral nutrition
     Dosage: 11.3 ML
     Route: 042
  2. TPN ELECTROLYTES [Suspect]
     Active Substance: CALCIUM CHLORIDE\MAGNESIUM CHLORIDE\POTASSIUM CHLORIDE\SODIUM ACETATE ANHYDROUS\SODIUM CHLORIDE
     Dosage: 11.3 ML
     Route: 042
  3. ACETAZOLAMIDE [Concomitant]
     Active Substance: ACETAZOLAMIDE
  4. DEXMEDETOMIDINE [Concomitant]
     Active Substance: DEXMEDETOMIDINE
  5. FAMOTIDINE [Concomitant]
     Active Substance: FAMOTIDINE
  6. FENTANYL [Concomitant]
     Active Substance: FENTANYL
  7. FUROSEMIDE [Concomitant]
     Active Substance: FUROSEMIDE
  8. KETAMINE [Concomitant]
     Active Substance: KETAMINE
  9. METOLAZONE [Concomitant]
     Active Substance: METOLAZONE
  10. MORPHINE [Concomitant]
     Active Substance: MORPHINE
  11. ONDANSETRON [Concomitant]
     Active Substance: ONDANSETRON
  12. SILDENAFIL [Concomitant]
     Active Substance: SILDENAFIL

REACTIONS (1)
  - Urticaria [Recovered/Resolved]
